FAERS Safety Report 25377388 (Version 1)
Quarter: 2025Q2

REPORT INFORMATION
  Report Type: Spontaneous
  Country: US (occurrence: US)
  Receive Date: 20250530
  Receipt Date: 20250530
  Transmission Date: 20250716
  Serious: No
  Sender: TAKEDA
  Company Number: US-TAKEDA-2025TUS050205

PATIENT
  Age: 28 Year
  Sex: Female

DRUGS (3)
  1. CINRYZE [Suspect]
     Active Substance: HUMAN C1-ESTERASE INHIBITOR
     Indication: Product used for unknown indication
  2. CINRYZE [Suspect]
     Active Substance: HUMAN C1-ESTERASE INHIBITOR
  3. CINRYZE [Suspect]
     Active Substance: HUMAN C1-ESTERASE INHIBITOR

REACTIONS (9)
  - Nasopharyngitis [Unknown]
  - Tremor [Unknown]
  - Hyperhidrosis [Unknown]
  - Feeling hot [Unknown]
  - Loss of personal independence in daily activities [Unknown]
  - Pain [Unknown]
  - Malaise [Unknown]
  - Sinusitis [Recovered/Resolved]
  - Arthralgia [Unknown]

NARRATIVE: CASE EVENT DATE: 20250528
